FAERS Safety Report 11434072 (Version 2)
Quarter: 2015Q3

REPORT INFORMATION
  Report Type: Spontaneous
  Country: IT (occurrence: IT)
  Receive Date: 20150831
  Receipt Date: 20150907
  Transmission Date: 20151125
  Serious: Yes (Hospitalization)
  Sender: FDA-Public Use
  Company Number: IT-BIOGENIDEC-2015BI115750

PATIENT
  Age: 34 Year
  Sex: Male

DRUGS (2)
  1. AVONEX [Suspect]
     Active Substance: INTERFERON BETA-1A
     Indication: PRIMARY PROGRESSIVE MULTIPLE SCLEROSIS
  2. METHYLPREDNISOLONE. [Concomitant]
     Active Substance: METHYLPREDNISOLONE
     Indication: PRIMARY PROGRESSIVE MULTIPLE SCLEROSIS
     Route: 042

REACTIONS (2)
  - Leukodystrophy [Not Recovered/Not Resolved]
  - Intentional product use issue [Unknown]
